FAERS Safety Report 11706726 (Version 1)
Quarter: 2015Q4

REPORT INFORMATION
  Report Type: Spontaneous
  Country: US (occurrence: US)
  Receive Date: 20151106
  Receipt Date: 20151106
  Transmission Date: 20160304
  Serious: No
  Sender: FDA-Public Use
  Company Number: US-WATSON-2015-15652

PATIENT
  Sex: Male

DRUGS (2)
  1. ANDRODERM [Suspect]
     Active Substance: TESTOSTERONE
     Indication: BLOOD TESTOSTERONE DECREASED
  2. ANDRODERM [Suspect]
     Active Substance: TESTOSTERONE
     Indication: ASTHENIA
     Dosage: 2 MG, EVERY 24 HOURS
     Route: 062
     Dates: start: 201506

REACTIONS (2)
  - Drug ineffective [Unknown]
  - Asthenia [None]

NARRATIVE: CASE EVENT DATE: 2015
